FAERS Safety Report 8797301 (Version 3)
Quarter: 2012Q4

REPORT INFORMATION
  Report Type: 
  Country: GB (occurrence: GB)
  Receive Date: 20120919
  Receipt Date: 20121126
  Transmission Date: 20130627
  Serious: Yes (Death)
  Sender: FDA-Public Use
  Company Number: GB-ACTELION-A-CH2012-71704

PATIENT
  Age: 50 Year
  Sex: Female

DRUGS (9)
  1. TRACLEER [Suspect]
     Indication: PULMONARY HYPERTENSION
     Dosage: 125 mg, bid
     Route: 048
     Dates: start: 20101201, end: 20120906
  2. TRACLEER [Suspect]
     Dosage: 62.5 mg, bid
     Route: 048
     Dates: start: 20101103, end: 20101130
  3. WARFARIN [Concomitant]
  4. BUMETANIDE [Concomitant]
  5. SPIRONOLACTONE [Concomitant]
  6. PREDNISOLONE [Concomitant]
  7. N-ACETYLCYSTEINE [Concomitant]
  8. LANSOPRAZOLE [Concomitant]
  9. BISOPROLOL [Concomitant]

REACTIONS (3)
  - Pulmonary hypertension [Fatal]
  - Terminal state [Fatal]
  - Interstitial lung disease [Fatal]
